FAERS Safety Report 9523587 (Version 3)
Quarter: 2013Q4

REPORT INFORMATION
  Report Type: Spontaneous
  Country: IT (occurrence: IT)
  Receive Date: 20130913
  Receipt Date: 20131119
  Transmission Date: 20140711
  Serious: Yes (Life-Threatening, Hospitalization)
  Sender: FDA-Public Use
  Company Number: IT-ASTRAZENECA-2013SE69092

PATIENT
  Age: 2758 Week
  Sex: Female

DRUGS (4)
  1. QUETIAPINE [Suspect]
     Indication: DEPRESSION
     Dosage: 4000 MG, ONCE/SINGLE ADMINISTRATION
     Route: 048
     Dates: start: 20130623, end: 20130623
  2. QUETIAPINE [Suspect]
     Indication: DEPRESSION
     Route: 048
     Dates: start: 20130628
  3. DIAZEPAM DROP [Suspect]
     Indication: DEPRESSION
     Dosage: 20 ML, ONCE/SINGLE ADMINISTRATION
     Route: 048
     Dates: start: 20130623, end: 20130623
  4. CITALOPRAM [Suspect]
     Indication: DEPRESSION
     Dosage: 560 MG, ONCE/SINGLE ADMINISTRATION
     Route: 048
     Dates: start: 20130623, end: 20130623

REACTIONS (4)
  - Overdose [Unknown]
  - Suicide attempt [Recovering/Resolving]
  - Loss of consciousness [Recovering/Resolving]
  - Sopor [Recovering/Resolving]
